FAERS Safety Report 7304455-4 (Version None)
Quarter: 2011Q1

REPORT INFORMATION
  Report Type: 
  Country: None (occurrence: None)
  Receive Date: 20110221
  Receipt Date: 20110216
  Transmission Date: 20110831
  Serious: Yes (Death, Hospitalization)
  Sender: FDA-Public Use
  Company Number: US-ASTRAZENECA-2010SE33032

PATIENT
  Age: 90 Year
  Sex: Female

DRUGS (5)
  1. SEROQUEL [Suspect]
     Route: 048
  2. FUROSEMIDE [Concomitant]
  3. NAMENDA [Concomitant]
  4. EXCELON [Concomitant]
  5. LEVOTHYROXINE [Concomitant]

REACTIONS (2)
  - DEATH [None]
  - MENTAL DISORDER [None]
